FAERS Safety Report 24421836 (Version 5)
Quarter: 2024Q4

REPORT INFORMATION
  Report Type: Report from Study
  Country: US (occurrence: US)
  Receive Date: 20241010
  Receipt Date: 20241204
  Transmission Date: 20250114
  Serious: Yes (Hospitalization)
  Sender: TAKEDA
  Company Number: US-TAKEDA-2024TUS094746

PATIENT
  Sex: Female

DRUGS (11)
  1. PONATINIB [Suspect]
     Active Substance: PONATINIB
     Indication: Acute lymphocytic leukaemia
     Dosage: 30 MILLIGRAM, QD
  2. PONATINIB [Suspect]
     Active Substance: PONATINIB
     Dosage: 30 MILLIGRAM, QD
  3. DEPAKOTE ER [Concomitant]
     Active Substance: DIVALPROEX SODIUM
     Dosage: UNK
  4. MYSOLINE [Concomitant]
     Active Substance: PRIMIDONE
     Dosage: UNK
  5. VITAMIN D3 [Concomitant]
     Active Substance: CHOLECALCIFEROL
     Dosage: UNK
  6. ALLOPURINOL [Concomitant]
     Active Substance: ALLOPURINOL
     Dosage: 300 MILLIGRAM, QD
  7. LEVOFLOXACIN [Concomitant]
     Active Substance: LEVOFLOXACIN
     Dosage: 500 MILLIGRAM, QD
  8. ACYCLOVIR [Concomitant]
     Active Substance: ACYCLOVIR
     Dosage: 200 MILLIGRAM, BID
  9. VORICONAZOLE [Concomitant]
     Active Substance: VORICONAZOLE
     Dosage: UNK
  10. BLINCYTO [Concomitant]
     Active Substance: BLINATUMOMAB
     Dosage: UNK
  11. FUROSEMIDE [Concomitant]
     Active Substance: FUROSEMIDE
     Dosage: UNK

REACTIONS (13)
  - Hospitalisation [Unknown]
  - Generalised oedema [Unknown]
  - Skin fissures [Unknown]
  - Off label use [Unknown]
  - Cyst [Unknown]
  - Rash [Unknown]
  - Peripheral swelling [Unknown]
  - Dry skin [Not Recovered/Not Resolved]
  - Abdominal distension [Unknown]
  - Dyspnoea [Unknown]
  - Platelet count decreased [Unknown]
  - Skin exfoliation [Unknown]
  - Alopecia [Unknown]
